FAERS Safety Report 6534385-7 (Version None)
Quarter: 2010Q1

REPORT INFORMATION
  Report Type: 
  Country: None (occurrence: None)
  Receive Date: 20100112
  Receipt Date: 20100105
  Transmission Date: 20100710
  Serious: Yes (Hospitalization)
  Sender: FDA-Public Use
  Company Number: FR-ELI_LILLY_AND_COMPANY-FR201001000325

PATIENT
  Sex: Female

DRUGS (6)
  1. GEMZAR [Suspect]
     Indication: BREAST CANCER
     Dosage: 1850 MG, UNKNOWN
     Route: 042
     Dates: start: 20090930
  2. ELOXATIN [Concomitant]
     Indication: BREAST CANCER
     Dosage: 185 MG, UNKNOWN
     Route: 042
     Dates: start: 20090930
  3. KYTRIL [Concomitant]
     Dosage: 1 D/F, DAILY (1/D)
     Dates: start: 20090930, end: 20090930
  4. POLARAMINE [Concomitant]
     Dosage: UNK, UNKNOWN
     Dates: start: 20090930
  5. CORTICOSTEROID NOS [Concomitant]
     Dosage: UNK, UNKNOWN
     Dates: start: 20091001
  6. CALCIUM [Concomitant]
     Dosage: UNK, UNKNOWN
     Dates: start: 20091020

REACTIONS (4)
  - DYSPHAGIA [None]
  - DYSPNOEA [None]
  - MUSCLE CONTRACTURE [None]
  - PSEUDOPARALYSIS [None]
